FAERS Safety Report 18046958 (Version 1)
Quarter: 2020Q3

REPORT INFORMATION
  Report Type: Spontaneous
  Country: US (occurrence: US)
  Receive Date: 20200720
  Receipt Date: 20200720
  Transmission Date: 20201103
  Serious: No
  Sender: FDA-Public Use
  Company Number: US-ROCHE-2415539

PATIENT
  Sex: Female

DRUGS (2)
  1. TECENTRIQ [Suspect]
     Active Substance: ATEZOLIZUMAB
     Indication: SMALL CELL LUNG CANCER
     Route: 042
     Dates: start: 2019
  2. TECENTRIQ [Suspect]
     Active Substance: ATEZOLIZUMAB
     Dosage: MAINTENANCE PHASE
     Route: 042
     Dates: start: 2019

REACTIONS (3)
  - Off label use [Unknown]
  - Intentional product use issue [Unknown]
  - Tremor [Unknown]

NARRATIVE: CASE EVENT DATE: 2019
